FAERS Safety Report 26054877 (Version 1)
Quarter: 2025Q4

REPORT INFORMATION
  Report Type: Spontaneous
  Country: US (occurrence: None)
  Receive Date: 20251117
  Receipt Date: 20251117
  Transmission Date: 20260117
  Serious: Yes (Other)
  Sender: UCB
  Company Number: US-UCBSA-2025072197

PATIENT

DRUGS (1)
  1. KEPPRA [Suspect]
     Active Substance: LEVETIRACETAM
     Indication: Seizure
     Dosage: UNK

REACTIONS (7)
  - Seizure [Unknown]
  - Fall [Unknown]
  - Nasal injury [Unknown]
  - Periorbital swelling [Unknown]
  - Eye contusion [Unknown]
  - Inability to afford medication [Unknown]
  - Product availability issue [Unknown]
